FAERS Safety Report 5530578-6 (Version None)
Quarter: 2007Q4

REPORT INFORMATION
  Report Type: 
  Country: None (occurrence: None)
  Receive Date: 20071130
  Receipt Date: 20071119
  Transmission Date: 20080405
  Serious: Yes (Hospitalization)
  Sender: FDA-Public Use
  Company Number: BR-JNJFOC-20071109151

PATIENT
  Age: 13 Year
  Sex: Male
  Weight: 40 kg

DRUGS (1)
  1. HALDOL [Suspect]
     Indication: INTENTIONAL DRUG MISUSE

REACTIONS (3)
  - EXTRAPYRAMIDAL DISORDER [None]
  - INTENTIONAL DRUG MISUSE [None]
  - TREMOR [None]
